FAERS Safety Report 4758904-6 (Version None)
Quarter: 2005Q3

REPORT INFORMATION
  Report Type: 
  Country: None (occurrence: None)
  Receive Date: 20050831
  Receipt Date: 20050815
  Transmission Date: 20060218
  Serious: Yes (Hospitalization)
  Sender: FDA-Public Use
  Company Number: 2005S1007694

PATIENT
  Sex: Female

DRUGS (1)
  1. FENTANYL [Suspect]
     Dosage: Q3D; TDER
     Route: 062

REACTIONS (4)
  - CONVULSION [None]
  - DRUG EFFECT DECREASED [None]
  - DRUG LEVEL DECREASED [None]
  - PAIN [None]
